FAERS Safety Report 4933971-5 (Version None)
Quarter: 2006Q1

REPORT INFORMATION
  Report Type: 
  Country: None (occurrence: None)
  Receive Date: 20060303
  Receipt Date: 20060218
  Transmission Date: 20060701
  Serious: Yes (Other)
  Sender: FDA-Public Use
  Company Number: 2006024323

PATIENT
  Sex: Female

DRUGS (2)
  1. BENADRYL [Suspect]
     Indication: INSOMNIA
     Dosage: 1 OCCASIONALLY, ORAL
     Route: 048
  2. ATENOLOL [Concomitant]

REACTIONS (5)
  - DYSGRAPHIA [None]
  - EAR DISCOMFORT [None]
  - FEELING ABNORMAL [None]
  - HEARING IMPAIRED [None]
  - SPEECH DISORDER [None]
